FAERS Safety Report 20302677 (Version 2)
Quarter: 2022Q1

REPORT INFORMATION
  Report Type: Other
  Country: NO (occurrence: NO)
  Receive Date: 20220106
  Receipt Date: 20220120
  Transmission Date: 20220423
  Serious: Yes (Other)
  Sender: FDA-Public Use
  Company Number: NO-DENTSPLY-2021SCDP000375

PATIENT
  Age: 23 Year
  Sex: Male

DRUGS (2)
  1. XYLOCAINE [Suspect]
     Active Substance: LIDOCAINE HYDROCHLORIDE
     Indication: Anaesthesia oral
     Dosage: 3.6 UNK SOLUTION FOR INJECTION (ADRENALINE, 20 MG/ML LIDOCAINE) (N01BB52 - LIDOCAINE, COMBINATIONS)
     Dates: start: 20211209, end: 20211209
  2. BENZOCAINE [Suspect]
     Active Substance: BENZOCAINE
     Indication: Anaesthesia oral
     Dosage: 0.5 MILLILITER GEL (N01BA05 - BENZOCAINE)
     Route: 003
     Dates: start: 20211209, end: 20211209

REACTIONS (6)
  - Dysphonia [Recovered/Resolved]
  - Dysphagia [Recovered/Resolved]
  - Pharyngeal erythema [Recovered/Resolved]
  - Oropharyngeal discomfort [Recovered/Resolved]
  - Saliva altered [Recovered/Resolved]
  - Dysphonia [Recovered/Resolved]

NARRATIVE: CASE EVENT DATE: 20211209
